FAERS Safety Report 9175549 (Version 3)
Quarter: 2013Q4

REPORT INFORMATION
  Report Type: Spontaneous
  Country: US (occurrence: US)
  Receive Date: 20120912
  Receipt Date: 20131119
  Transmission Date: 20140711
  Serious: Yes (Other)
  Sender: FDA-Public Use
  Company Number: US-ROCHE-1122494

PATIENT
  Sex: Male
  Weight: 81.72 kg

DRUGS (2)
  1. ACCUTANE [Suspect]
     Indication: ACNE
     Route: 065
     Dates: start: 19991101, end: 200002
  2. ACCUTANE [Suspect]
     Route: 065
     Dates: start: 1997, end: 1998

REACTIONS (8)
  - Colitis ulcerative [Unknown]
  - Inflammatory bowel disease [Unknown]
  - Depression [Unknown]
  - Injury [Unknown]
  - Crohn^s disease [Unknown]
  - Intestinal haemorrhage [Unknown]
  - Intestinal obstruction [Unknown]
  - Irritable bowel syndrome [Unknown]
